FAERS Safety Report 5591433-9 (Version None)
Quarter: 2008Q1

REPORT INFORMATION
  Report Type: 
  Country: None (occurrence: None)
  Receive Date: 20080115
  Receipt Date: 20080104
  Transmission Date: 20080703
  Serious: Yes (Hospitalization)
  Sender: FDA-Public Use
  Company Number: ES-JNJFOC-20080101231

PATIENT
  Age: 68 Year
  Sex: Male

DRUGS (3)
  1. CANADIOL [Suspect]
     Indication: FUNGAL INFECTION
     Route: 048
  2. VINCRISTINE [Suspect]
     Indication: LEUKAEMIA
     Route: 048
  3. DAUNORUBICIN HCL [Suspect]
     Indication: LEUKAEMIA
     Route: 042

REACTIONS (1)
  - ILEUS PARALYTIC [None]
